FAERS Safety Report 25721886 (Version 1)
Quarter: 2025Q3

REPORT INFORMATION
  Report Type: Report from Study
  Country: US (occurrence: US)
  Receive Date: 20250825
  Receipt Date: 20250825
  Transmission Date: 20251020
  Serious: Yes (Death, Other)
  Sender: ALEXION PHARMACEUTICALS
  Company Number: US-AstraZeneca-CH-00793861A

PATIENT
  Age: 86 Year
  Sex: Female
  Weight: 27.211 kg

DRUGS (2)
  1. OSIMERTINIB [Suspect]
     Active Substance: OSIMERTINIB
     Indication: Product used for unknown indication
     Dosage: 80 MILLIGRAM, QD
     Dates: start: 202305
  2. PROPAFENONE [Concomitant]
     Active Substance: PROPAFENONE
     Route: 065

REACTIONS (7)
  - Death [Fatal]
  - Brain neoplasm [Unknown]
  - Diarrhoea [Unknown]
  - Skin disorder [Unknown]
  - Dyspnoea [Unknown]
  - Cognitive disorder [Unknown]
  - Disease progression [Unknown]
